FAERS Safety Report 6343246-8 (Version None)
Quarter: 2009Q3

REPORT INFORMATION
  Report Type: 
  Country: None (occurrence: None)
  Receive Date: 20090908
  Receipt Date: 20090827
  Transmission Date: 20100115
  Serious: Yes (Hospitalization, Other)
  Sender: FDA-Public Use
  Company Number: PHEH2007US11023

PATIENT
  Sex: Male

DRUGS (23)
  1. ZOMETA [Suspect]
     Indication: MULTIPLE MYELOMA
     Dosage: 4MG
     Route: 042
     Dates: end: 20090201
  2. THALIDOMIDE [Concomitant]
  3. CALCIUM WITH VITAMIN D [Concomitant]
  4. STEROIDS NOS [Concomitant]
  5. ARANESP [Concomitant]
  6. DEXAMETHASONE [Concomitant]
  7. ACETAMINOPHEN [Concomitant]
     Dosage: UNK
  8. LISINOPRIL [Concomitant]
  9. MAGNESIUM CITRATE [Concomitant]
  10. GATIFLOXACIN [Concomitant]
  11. OXYCODONE HYDROCHLORIDE W/PARACETAMOL [Concomitant]
  12. DOCUSATE [Concomitant]
  13. LACTULOSE [Concomitant]
  14. FLUOCINOLONE ACETONIDE [Concomitant]
  15. GABAPENTIN [Concomitant]
  16. SENNOSIDE [Concomitant]
  17. DECADRON                                /CAN/ [Concomitant]
  18. ZANTAC [Concomitant]
  19. COLACE [Concomitant]
  20. SENNA [Concomitant]
  21. COUMADIN [Concomitant]
  22. GLUCOSAMINE SULFATE W/CHONDROITIN [Concomitant]
  23. FOLIC ACID [Concomitant]

REACTIONS (49)
  - ANAEMIA [None]
  - ANXIETY [None]
  - BACK INJURY [None]
  - BACK PAIN [None]
  - BONE LESION [None]
  - BUNDLE BRANCH BLOCK RIGHT [None]
  - BURSITIS [None]
  - CANDIDIASIS [None]
  - CATARACT [None]
  - DECREASED INTEREST [None]
  - DEFORMITY [None]
  - DIARRHOEA [None]
  - ELECTROCARDIOGRAM QRS COMPLEX PROLONGED [None]
  - EMOTIONAL DISTRESS [None]
  - ESSENTIAL HYPERTENSION [None]
  - EXOSTOSIS [None]
  - GASTROOESOPHAGEAL REFLUX DISEASE [None]
  - GINGIVITIS [None]
  - HIATUS HERNIA [None]
  - HYPERHIDROSIS [None]
  - HYPERLIPIDAEMIA [None]
  - HYPOAESTHESIA [None]
  - HYPOPHAGIA [None]
  - INFECTION [None]
  - LEFT VENTRICULAR HYPERTROPHY [None]
  - LIFE EXPECTANCY SHORTENED [None]
  - MERALGIA PARAESTHETICA [None]
  - MUSCULOSKELETAL DISCOMFORT [None]
  - NEURALGIA [None]
  - ORAL PAIN [None]
  - OSTEOARTHRITIS [None]
  - OSTEONECROSIS [None]
  - OSTEOSCLEROSIS [None]
  - OTITIS EXTERNA [None]
  - OVERDOSE [None]
  - PAIN [None]
  - PAIN IN EXTREMITY [None]
  - PLANTAR FASCIITIS [None]
  - POLLAKIURIA [None]
  - PYREXIA [None]
  - RESORPTION BONE INCREASED [None]
  - SEBORRHOEIC DERMATITIS [None]
  - SINUS ARRHYTHMIA [None]
  - SINUS BRADYCARDIA [None]
  - SPINAL FRACTURE [None]
  - STOMATITIS [None]
  - TOOTH EXTRACTION [None]
  - VERTEBROPLASTY [None]
  - WHEEZING [None]
